FAERS Safety Report 4287204-6 (Version None)
Quarter: 2004Q1

REPORT INFORMATION
  Report Type: 
  Country: None (occurrence: None)
  Receive Date: 20040126
  Receipt Date: 20031006
  Transmission Date: 20041129
  Serious: No
  Sender: FDA-Public Use
  Company Number: USA031049131

PATIENT
  Age: 84 Year
  Sex: Female

DRUGS (14)
  1. FORTEO [Suspect]
     Indication: OSTEOPOROSIS
     Dates: start: 20030901
  2. ISOSORBIDE [Concomitant]
  3. LISINOPRIL [Concomitant]
  4. KLOR-CON [Concomitant]
  5. FUROSEMIDE [Concomitant]
  6. OMEPRAZOLE [Concomitant]
  7. SYNTHROID [Concomitant]
  8. DELTASONE [Concomitant]
  9. LIPITOR [Concomitant]
  10. GEMFIBROZIL [Concomitant]
  11. FOLIC ACID [Concomitant]
  12. PLAVIX [Concomitant]
  13. NITROGLYCERIN [Concomitant]
  14. MULTI-VITAMIN [Concomitant]

REACTIONS (4)
  - INJECTION SITE HAEMORRHAGE [None]
  - INJECTION SITE PAIN [None]
  - PAIN [None]
  - PAIN IN EXTREMITY [None]
